FAERS Safety Report 5456144-9 (Version None)
Quarter: 2007Q3

REPORT INFORMATION
  Report Type: 
  Country: None (occurrence: None)
  Receive Date: 20070918
  Receipt Date: 20070228
  Transmission Date: 20080115
  Serious: Yes (Other)
  Sender: FDA-Public Use
  Company Number: US-ASTRAZENECA-2006UW23330

PATIENT
  Sex: Female
  Weight: 100 kg

DRUGS (3)
  1. SEROQUEL [Suspect]
     Indication: SLEEP DISORDER
     Route: 048
     Dates: start: 20020101
  2. SEROQUEL [Suspect]
     Indication: SEDATION
     Route: 048
     Dates: start: 20020101
  3. LEXAPRO [Concomitant]

REACTIONS (5)
  - DIABETES MELLITUS [None]
  - DIABETIC KETOACIDOSIS [None]
  - DYSPEPSIA [None]
  - HYPERTENSION [None]
  - PANCREATITIS [None]
